FAERS Safety Report 6746519-X (Version None)
Quarter: 2010Q2

REPORT INFORMATION
  Report Type: 
  Country: None (occurrence: None)
  Receive Date: 20100528
  Receipt Date: 20091223
  Transmission Date: 20101027
  Serious: No
  Sender: FDA-Public Use
  Company Number: US-ASTRAZENECA-2009SE33987

PATIENT
  Sex: Female

DRUGS (4)
  1. PRILOSEC OTC [Suspect]
     Indication: HELICOBACTER INFECTION
     Route: 048
     Dates: start: 20091223, end: 20091223
  2. PRILOSEC OTC [Suspect]
     Indication: HYPERCHLORHYDRIA
     Route: 048
     Dates: start: 20091223, end: 20091223
  3. PRILOSEC OTC [Suspect]
  4. PRILOSEC OTC [Suspect]

REACTIONS (4)
  - DIZZINESS [None]
  - HEADACHE [None]
  - NAUSEA [None]
  - PERIPHERAL COLDNESS [None]
